FAERS Safety Report 9449999 (Version 2)
Quarter: 2013Q3

REPORT INFORMATION
  Report Type: Spontaneous
  Country: US (occurrence: US)
  Receive Date: 20130809
  Receipt Date: 20130829
  Transmission Date: 20140515
  Serious: Yes (Death, Other)
  Sender: FDA-Public Use
  Company Number: US-PFIZER INC-2013231317

PATIENT
  Sex: Male

DRUGS (5)
  1. LYRICA [Suspect]
     Dosage: UNK
  2. CELEBREX [Suspect]
     Dosage: UNK
  3. NEURONTIN [Suspect]
     Dosage: UNK
  4. CARDURA [Suspect]
     Dosage: UNK
  5. LIPITOR [Suspect]
     Dosage: UNK

REACTIONS (1)
  - Pancreatic carcinoma [Fatal]
